FAERS Safety Report 24354444 (Version 2)
Quarter: 2025Q2

REPORT INFORMATION
  Report Type: Spontaneous
  Country: DE (occurrence: DE)
  Receive Date: 20240923
  Receipt Date: 20250610
  Transmission Date: 20250717
  Serious: Yes (Life-Threatening, Hospitalization, Other)
  Sender: MYLAN
  Company Number: DE-BRISTOL-MYERS SQUIBB COMPANY-2024-143093

PATIENT
  Age: 73 Year
  Sex: Male

DRUGS (36)
  1. APIXABAN [Suspect]
     Active Substance: APIXABAN
     Indication: Pulmonary embolism
     Dosage: 10 MILLIGRAM, QD
     Dates: start: 20240404
  2. APIXABAN [Suspect]
     Active Substance: APIXABAN
     Indication: Benign prostatic hyperplasia
     Dosage: 10 MILLIGRAM, QD
     Route: 048
     Dates: start: 20240404
  3. APIXABAN [Suspect]
     Active Substance: APIXABAN
     Dosage: 10 MILLIGRAM, QD
     Route: 048
     Dates: start: 20240404
  4. APIXABAN [Suspect]
     Active Substance: APIXABAN
     Dosage: 10 MILLIGRAM, QD
     Dates: start: 20240404
  5. TREMELIMUMAB [Suspect]
     Active Substance: TREMELIMUMAB
     Indication: Bladder cancer
     Dates: start: 20240314, end: 20240314
  6. TREMELIMUMAB [Suspect]
     Active Substance: TREMELIMUMAB
     Route: 042
     Dates: start: 20240314, end: 20240314
  7. TREMELIMUMAB [Suspect]
     Active Substance: TREMELIMUMAB
     Route: 042
     Dates: start: 20240314, end: 20240314
  8. TREMELIMUMAB [Suspect]
     Active Substance: TREMELIMUMAB
     Dates: start: 20240314, end: 20240314
  9. DURVALUMAB [Suspect]
     Active Substance: DURVALUMAB
     Indication: Bladder cancer
     Route: 042
     Dates: start: 20240314, end: 20240314
  10. DURVALUMAB [Suspect]
     Active Substance: DURVALUMAB
     Dates: start: 20240314, end: 20240314
  11. DURVALUMAB [Suspect]
     Active Substance: DURVALUMAB
     Dates: start: 20240314, end: 20240314
  12. DURVALUMAB [Suspect]
     Active Substance: DURVALUMAB
     Route: 042
     Dates: start: 20240314, end: 20240314
  13. DURVALUMAB [Suspect]
     Active Substance: DURVALUMAB
     Route: 042
     Dates: start: 20240426, end: 20240426
  14. DURVALUMAB [Suspect]
     Active Substance: DURVALUMAB
     Dates: start: 20240426, end: 20240426
  15. DURVALUMAB [Suspect]
     Active Substance: DURVALUMAB
     Dates: start: 20240426, end: 20240426
  16. DURVALUMAB [Suspect]
     Active Substance: DURVALUMAB
     Route: 042
     Dates: start: 20240426, end: 20240426
  17. PADCEV [Suspect]
     Active Substance: ENFORTUMAB VEDOTIN-EJFV
     Indication: Bladder cancer
     Route: 042
     Dates: start: 20240314, end: 20240314
  18. PADCEV [Suspect]
     Active Substance: ENFORTUMAB VEDOTIN-EJFV
     Route: 042
     Dates: start: 20240314, end: 20240314
  19. PADCEV [Suspect]
     Active Substance: ENFORTUMAB VEDOTIN-EJFV
     Dates: start: 20240314, end: 20240314
  20. PADCEV [Suspect]
     Active Substance: ENFORTUMAB VEDOTIN-EJFV
     Dates: start: 20240314, end: 20240314
  21. PADCEV [Suspect]
     Active Substance: ENFORTUMAB VEDOTIN-EJFV
     Route: 042
     Dates: start: 20240325, end: 20240325
  22. PADCEV [Suspect]
     Active Substance: ENFORTUMAB VEDOTIN-EJFV
     Dates: start: 20240325, end: 20240325
  23. PADCEV [Suspect]
     Active Substance: ENFORTUMAB VEDOTIN-EJFV
     Dates: start: 20240325, end: 20240325
  24. PADCEV [Suspect]
     Active Substance: ENFORTUMAB VEDOTIN-EJFV
     Route: 042
     Dates: start: 20240325, end: 20240325
  25. PADCEV [Suspect]
     Active Substance: ENFORTUMAB VEDOTIN-EJFV
     Route: 042
     Dates: start: 20240426, end: 20240426
  26. PADCEV [Suspect]
     Active Substance: ENFORTUMAB VEDOTIN-EJFV
     Route: 042
     Dates: start: 20240426, end: 20240426
  27. PADCEV [Suspect]
     Active Substance: ENFORTUMAB VEDOTIN-EJFV
     Dates: start: 20240426, end: 20240426
  28. PADCEV [Suspect]
     Active Substance: ENFORTUMAB VEDOTIN-EJFV
     Dates: start: 20240426, end: 20240426
  29. PADCEV [Suspect]
     Active Substance: ENFORTUMAB VEDOTIN-EJFV
     Route: 042
     Dates: start: 20240503, end: 20240503
  30. PADCEV [Suspect]
     Active Substance: ENFORTUMAB VEDOTIN-EJFV
     Dates: start: 20240503, end: 20240503
  31. PADCEV [Suspect]
     Active Substance: ENFORTUMAB VEDOTIN-EJFV
     Dates: start: 20240503, end: 20240503
  32. PADCEV [Suspect]
     Active Substance: ENFORTUMAB VEDOTIN-EJFV
     Route: 042
     Dates: start: 20240503, end: 20240503
  33. TAMSULOSIN [Concomitant]
     Active Substance: TAMSULOSIN
     Indication: Benign prostatic hyperplasia
     Dosage: 0.4 MILLIGRAM, QD
  34. TAMSULOSIN [Concomitant]
     Active Substance: TAMSULOSIN
     Dosage: 0.4 MILLIGRAM, QD
     Route: 048
  35. TAMSULOSIN [Concomitant]
     Active Substance: TAMSULOSIN
     Dosage: 0.4 MILLIGRAM, QD
     Route: 048
  36. TAMSULOSIN [Concomitant]
     Active Substance: TAMSULOSIN
     Dosage: 0.4 MILLIGRAM, QD

REACTIONS (3)
  - Stevens-Johnson syndrome [Recovered/Resolved]
  - Bacterial sepsis [Recovered/Resolved]
  - Loss of consciousness [Unknown]

NARRATIVE: CASE EVENT DATE: 20240507
